FAERS Safety Report 9275020 (Version 1)
Quarter: 2013Q2

REPORT INFORMATION
  Report Type: Spontaneous
  Country: AU (occurrence: AU)
  Receive Date: 20130507
  Receipt Date: 20130507
  Transmission Date: 20140414
  Serious: Yes (Other)
  Sender: FDA-Public Use
  Company Number: AU-ASTELLAS-2013US004743

PATIENT
  Age: 22 Year
  Sex: Female

DRUGS (4)
  1. PROGRAF [Suspect]
     Indication: PRODUCT USED FOR UNKNOWN INDICATION
     Dosage: UNK
     Route: 065
  2. AZATHIOPRINE [Suspect]
     Indication: PRODUCT USED FOR UNKNOWN INDICATION
     Dosage: UNK
     Route: 065
  3. PREDNISOLONE [Suspect]
     Indication: PRODUCT USED FOR UNKNOWN INDICATION
     Dosage: UNK
     Route: 065
  4. RITUXIMAB [Suspect]
     Indication: PRODUCT USED FOR UNKNOWN INDICATION
     Dosage: UNK
     Route: 065

REACTIONS (9)
  - Off label use [Unknown]
  - Glomerulonephritis membranous [Recovered/Resolved]
  - Renal cancer stage I [Unknown]
  - Renal impairment [Unknown]
  - Glioma [Recovered/Resolved]
  - Toxicity to various agents [Unknown]
  - Convulsion [Unknown]
  - Proteinuria [Unknown]
  - Headache [Unknown]
